FAERS Safety Report 12208377 (Version 1)
Quarter: 2016Q1

REPORT INFORMATION
  Report Type: Spontaneous
  Country: US (occurrence: US)
  Receive Date: 20160324
  Receipt Date: 20160324
  Transmission Date: 20160526
  Serious: Yes (Other)
  Sender: FDA-Public Use
  Company Number: US-SA-2016SA054930

PATIENT
  Age: 58 Year
  Sex: Male
  Weight: 153.77 kg

DRUGS (2)
  1. MULTAQ [Suspect]
     Active Substance: DRONEDARONE
     Indication: ATRIAL FIBRILLATION
     Route: 065
     Dates: start: 201411, end: 20151029
  2. FUROSEMIDE. [Concomitant]
     Active Substance: FUROSEMIDE
     Indication: OEDEMA

REACTIONS (1)
  - Diabetes mellitus [Not Recovered/Not Resolved]

NARRATIVE: CASE EVENT DATE: 201411
